FAERS Safety Report 5031443-3 (Version None)
Quarter: 2006Q2

REPORT INFORMATION
  Report Type: 
  Country: None (occurrence: None)
  Receive Date: 20060621
  Receipt Date: 20060609
  Transmission Date: 20061013
  Serious: Yes (Hospitalization)
  Sender: FDA-Public Use
  Company Number: SE-BRISTOL-MYERS SQUIBB COMPANY-13406012

PATIENT
  Age: 36 Year
  Sex: Female

DRUGS (4)
  1. ABILIFY [Suspect]
     Dates: start: 20051222, end: 20060214
  2. CLOZAPINE [Suspect]
     Dates: start: 20050630, end: 20060102
  3. RANITIDINE [Concomitant]
  4. HYOSCYAMINE [Concomitant]

REACTIONS (1)
  - AGRANULOCYTOSIS [None]
